FAERS Safety Report 8793786 (Version 3)
Quarter: 2012Q4

REPORT INFORMATION
  Report Type: Report from Study
  Country: JP (occurrence: JP)
  Receive Date: 20120917
  Receipt Date: 20121218
  Transmission Date: 20130627
  Serious: Yes (Other)
  Sender: FDA-Public Use
  Company Number: JP-VERTEX PHARMACEUTICAL INC.-2012-021041

PATIENT
  Age: 67 Year
  Sex: Male

DRUGS (8)
  1. VX-950 (TELAPREVIR) [Suspect]
     Indication: CHRONIC HEPATITIS C
     Dosage: 1500 mg, qd
     Route: 048
     Dates: start: 20120308, end: 20120530
  2. RIBAVIRIN [Suspect]
     Indication: CHRONIC HEPATITIS C
     Dosage: 400 mg, qd
     Route: 048
     Dates: start: 20120308, end: 20120411
  3. RIBAVIRIN [Suspect]
     Dosage: 200 mg,qd
     Route: 048
     Dates: start: 20120412, end: 20120605
  4. RIBAVIRIN [Suspect]
     Dosage: 100 mg, qd
     Route: 048
     Dates: start: 20120606, end: 20120620
  5. PEGINTERFERON ALFA-2B [Suspect]
     Indication: CHRONIC HEPATITIS C
     Dosage: 1.5 ?g/kg, qw
     Route: 058
     Dates: start: 20120308, end: 20120614
  6. DOMPERIDONE [Concomitant]
     Dosage: 30 mg, qd
     Route: 048
     Dates: start: 20120308
  7. ALLEGRA [Concomitant]
     Dosage: 120 mg, qd
     Route: 048
     Dates: start: 20120309, end: 20120314
  8. LENDORMIN [Concomitant]
     Dosage: 0.125 mg, qd
     Route: 048
     Dates: start: 20120312

REACTIONS (1)
  - Right ventricular failure [Recovered/Resolved]
